FAERS Safety Report 6991655-6 (Version None)
Quarter: 2010Q3

REPORT INFORMATION
  Report Type: 
  Country: None (occurrence: None)
  Receive Date: 20100915
  Receipt Date: 20100915
  Transmission Date: 20110219
  Serious: Yes (Other)
  Sender: FDA-Public Use
  Company Number: None

PATIENT
  Age: 69 Year
  Sex: Female
  Weight: 120.2032 kg

DRUGS (1)
  1. DIGEL CHEWABLE (FOR HEARTBURN) [Suspect]
     Indication: DYSPEPSIA
     Dosage: 1 TABLET (ONCE SPRING 2010)

REACTIONS (3)
  - DYSPHAGIA [None]
  - REACTION TO FOOD ADDITIVE [None]
  - THROAT TIGHTNESS [None]
